FAERS Safety Report 9815598 (Version 2)
Quarter: 2014Q1

REPORT INFORMATION
  Report Type: Spontaneous
  Country: JP (occurrence: None)
  Receive Date: 20140110
  Receipt Date: 20140131
  Transmission Date: 20141002
  Serious: Yes (Other)
  Sender: FDA-Public Use
  Company Number: SP07389

PATIENT
  Age: 22 Year
  Sex: Male

DRUGS (5)
  1. MOVIPREP [Suspect]
     Indication: BOWEL PREPARATION
     Dosage: 1 LIT, ORAL
     Route: 048
     Dates: start: 20131113, end: 20131113
  2. GASMOTIN [Suspect]
     Route: 048
     Dates: start: 20131113, end: 20131113
  3. IMURAN [Concomitant]
  4. PENTASA [Concomitant]
  5. PURSENNID [Concomitant]

REACTIONS (1)
  - Pancreatitis acute [None]
